FAERS Safety Report 8808644 (Version 1)
Quarter: 2012Q4

REPORT INFORMATION
  Report Type: Spontaneous
  Country: US (occurrence: None)
  Receive Date: 20120921
  Receipt Date: 20120921
  Transmission Date: 20130627
  Serious: Yes (Other)
  Sender: FDA-Public Use
  Company Number: None

PATIENT
  Age: 70 Year
  Sex: Female

DRUGS (1)
  1. NITROFURANTOIN MONOHYDRATE [Suspect]
     Dosage: 100 mg 2 daily Alvogen/Norwich Pharmacy
     Dates: start: 20120818, end: 20120825

REACTIONS (5)
  - Musculoskeletal stiffness [None]
  - Muscle spasms [None]
  - Movement disorder [None]
  - Lower respiratory tract infection [None]
  - Drug ineffective [None]
